FAERS Safety Report 8164882 (Version 8)
Quarter: 2013Q3

REPORT INFORMATION
  Report Type: Spontaneous
  Country: US (occurrence: US)
  Receive Date: 20111003
  Receipt Date: 20130926
  Transmission Date: 20140515
  Serious: Yes (Hospitalization)
  Sender: FDA-Public Use
  Company Number: US-BIOGENIDEC-2011BI036553

PATIENT
  Age: 54 Year
  Sex: Female

DRUGS (6)
  1. AVONEX [Suspect]
     Indication: MULTIPLE SCLEROSIS
     Route: 030
     Dates: start: 19991201
  2. AVONEX [Suspect]
     Indication: MULTIPLE SCLEROSIS
     Route: 030
     Dates: start: 19991201, end: 2003
  3. AVONEX [Suspect]
     Indication: MULTIPLE SCLEROSIS
     Route: 030
     Dates: start: 2003
  4. AVONEX [Suspect]
     Indication: MULTIPLE SCLEROSIS
     Route: 030
     Dates: end: 20130914
  5. COUMADIN [Concomitant]
  6. ASPIRIN [Concomitant]

REACTIONS (16)
  - Fall [Recovered/Resolved]
  - Hip fracture [Recovered/Resolved]
  - Pain in extremity [Recovered/Resolved]
  - Coagulation time prolonged [Recovered/Resolved]
  - Stress [Not Recovered/Not Resolved]
  - Limb asymmetry [Recovered/Resolved]
  - Visual impairment [Not Recovered/Not Resolved]
  - Gait disturbance [Not Recovered/Not Resolved]
  - Hypoaesthesia [Not Recovered/Not Resolved]
  - Peripheral coldness [Not Recovered/Not Resolved]
  - Loss of control of legs [Not Recovered/Not Resolved]
  - Multiple sclerosis relapse [Recovered/Resolved]
  - Paraesthesia [Not Recovered/Not Resolved]
  - Pain [Not Recovered/Not Resolved]
  - Headache [Not Recovered/Not Resolved]
  - Arthralgia [Recovered/Resolved]
